FAERS Safety Report 18435070 (Version 4)
Quarter: 2022Q1

REPORT INFORMATION
  Report Type: Report from Study
  Country: MX (occurrence: MX)
  Receive Date: 20201028
  Receipt Date: 20220124
  Transmission Date: 20220424
  Serious: Yes (Hospitalization, Other)
  Sender: FDA-Public Use
  Company Number: MX-NOVARTISPH-NVSC2020MX285318

PATIENT
  Age: 50 Year
  Sex: Female
  Weight: 77 kg

DRUGS (2)
  1. TASIGNA [Suspect]
     Active Substance: NILOTINIB
     Indication: Chronic myeloid leukaemia
     Dosage: 400 MG (EVERY 12 HOURS)
     Route: 048
     Dates: start: 201804
  2. IMATINIB [Suspect]
     Active Substance: IMATINIB
     Indication: Leukaemia
     Dosage: UNK
     Route: 065

REACTIONS (13)
  - COVID-19 [Not Recovered/Not Resolved]
  - Anaemia [Recovering/Resolving]
  - Pneumonia [Unknown]
  - Gait disturbance [Unknown]
  - Limb discomfort [Unknown]
  - Weight decreased [Unknown]
  - Asthenia [Unknown]
  - Malaise [Unknown]
  - Vertigo [Not Recovered/Not Resolved]
  - Hot flush [Not Recovered/Not Resolved]
  - Drug ineffective [Unknown]
  - Blood triglycerides increased [Unknown]
  - Abdominal discomfort [Unknown]

NARRATIVE: CASE EVENT DATE: 20200701
